FAERS Safety Report 4689660-8 (Version None)
Quarter: 2005Q2

REPORT INFORMATION
  Report Type: 
  Country: None (occurrence: None)
  Receive Date: 20050608
  Receipt Date: 20050309
  Transmission Date: 20051028
  Serious: No
  Sender: FDA-Public Use
  Company Number: 2005-BP-03765BP

PATIENT
  Sex: Male

DRUGS (15)
  1. SPIRIVA [Suspect]
     Indication: CHRONIC OBSTRUCTIVE PULMONARY DISEASE
     Dosage: 18 MCG (18 MCG, QD), IH
     Route: 055
     Dates: start: 20050101
  2. SPIRIVA [Suspect]
     Indication: DYSPNOEA
     Dosage: 18 MCG (18 MCG, QD), IH
     Route: 055
     Dates: start: 20050101
  3. COREG [Concomitant]
  4. COUMADIN [Concomitant]
  5. NORVASC [Concomitant]
  6. LASIX [Concomitant]
  7. ZOCOR [Concomitant]
  8. ALLOPURINOL [Concomitant]
  9. FLOMAX [Concomitant]
  10. ADVAIR DISKUS 100/50 [Concomitant]
  11. SAW PALMETTO (SERENOA REPENS) [Concomitant]
  12. GLCUOSAMINE [Concomitant]
  13. LEXAPRO (ESCITALPRAM OXALATE) [Concomitant]
  14. COLTRACINE [Concomitant]
  15. ALBUTEROL [Concomitant]

REACTIONS (1)
  - DRY MOUTH [None]
